FAERS Safety Report 8514118-5 (Version None)
Quarter: 2012Q3

REPORT INFORMATION
  Report Type: 
  Country: None (occurrence: None)
  Receive Date: 20120717
  Receipt Date: 20120712
  Transmission Date: 20120928
  Serious: Yes (Other)
  Sender: FDA-Public Use
  Company Number: JP-009507513-1109USA00767

PATIENT

DRUGS (6)
  1. MK-2452 [Suspect]
     Indication: NORMAL TENSION GLAUCOMA
     Dosage: 2 DF, QD
     Route: 047
     Dates: start: 20100510, end: 20110911
  2. MK-2452 [Suspect]
     Dosage: 1 DF, QD
     Route: 047
     Dates: start: 20110912
  3. GLYBURIDE [Concomitant]
  4. EPALRESTAT [Concomitant]
  5. SITAGLIPTIN PHOSPHATE [Concomitant]
  6. AMLODIPINE BESYLATE [Concomitant]

REACTIONS (1)
  - CATARACT [None]
